FAERS Safety Report 16608637 (Version 7)
Quarter: 2020Q4

REPORT INFORMATION
  Report Type: Spontaneous
  Country: US (occurrence: US)
  Receive Date: 20190722
  Receipt Date: 20201208
  Transmission Date: 20210113
  Serious: No
  Sender: FDA-Public Use
  Company Number: US-PFIZER INC-2019309419

PATIENT
  Age: 70 Year
  Sex: Female
  Weight: 100 kg

DRUGS (4)
  1. LYRICA [Suspect]
     Active Substance: PREGABALIN
     Dosage: 150 MG, THREE TIMES A DAY (TAKE 1 CAPSULE (150 MG) BY MOUTH EVERY 8 HOURS)
     Route: 048
     Dates: start: 20190722
  2. LYRICA [Suspect]
     Active Substance: PREGABALIN
     Indication: DIABETIC NEUROPATHY
     Dosage: 450 MG, DAILY (ONE IN THE MORNING AND TWO AT NIGHT)
     Route: 048
     Dates: end: 201907
  3. LYRICA [Suspect]
     Active Substance: PREGABALIN
     Dosage: UNK
  4. LYRICA [Suspect]
     Active Substance: PREGABALIN
     Indication: FIBROMYALGIA
     Dosage: 2 DF, DAILY
     Route: 048

REACTIONS (5)
  - Somnolence [Unknown]
  - Pain in extremity [Not Recovered/Not Resolved]
  - Drug ineffective [Unknown]
  - Illness [Unknown]
  - Product dose omission issue [Unknown]
